FAERS Safety Report 11814989 (Version 2)
Quarter: 2016Q1

REPORT INFORMATION
  Report Type: Spontaneous
  Country: US (occurrence: US)
  Receive Date: 20151209
  Receipt Date: 20160314
  Transmission Date: 20160525
  Serious: No
  Sender: FDA-Public Use
  Company Number: US-SA-2015SA147237

PATIENT
  Age: 68 Year
  Sex: Female

DRUGS (4)
  1. TOUJEO [Suspect]
     Active Substance: INSULIN GLARGINE
     Indication: TYPE 2 DIABETES MELLITUS
     Dosage: DOSE: 45-50 UNITS
     Route: 065
     Dates: start: 20150710
  2. SOLOSTAR [Concomitant]
     Active Substance: DEVICE
     Dates: end: 20150710
  3. SOLOSTAR [Concomitant]
     Active Substance: DEVICE
     Dates: start: 20150710
  4. LANTUS SOLOSTAR [Concomitant]
     Active Substance: INSULIN GLARGINE
     Dates: end: 20150710

REACTIONS (8)
  - Drug administration error [Unknown]
  - Pruritus [Unknown]
  - Rash [Unknown]
  - Skin discolouration [Recovering/Resolving]
  - Burning sensation [Recovered/Resolved]
  - Dermatitis [Unknown]
  - Skin discolouration [Recovering/Resolving]
  - Acrochordon [Recovering/Resolving]

NARRATIVE: CASE EVENT DATE: 2015
